FAERS Safety Report 5638160-7 (Version None)
Quarter: 2008Q1

REPORT INFORMATION
  Report Type: 
  Country: None (occurrence: None)
  Receive Date: 20080226
  Receipt Date: 20080213
  Transmission Date: 20080703
  Serious: Yes (Hospitalization, Other)
  Sender: FDA-Public Use
  Company Number: DE-ELI_LILLY_AND_COMPANY-DE200802003105

PATIENT
  Age: 23 Year
  Sex: Male

DRUGS (4)
  1. CIALIS [Suspect]
     Indication: ERECTILE DYSFUNCTION
     Dosage: 10 MG, UNKNOWN
  2. METOPROLOL TARTRATE [Concomitant]
     Dosage: UNK, UNKNOWN
  3. ENAHEXAL [Concomitant]
     Dosage: UNK, UNKNOWN
  4. DIAZEPAM [Concomitant]
     Dosage: UNK, UNKNOWN

REACTIONS (10)
  - ANOREXIA [None]
  - ANXIETY [None]
  - CHILLS [None]
  - ELECTROCARDIOGRAM ST SEGMENT ELEVATION [None]
  - HYPERACUSIS [None]
  - HYPERTENSION [None]
  - MUSCLE TWITCHING [None]
  - PSYCHOTIC DISORDER [None]
  - TACHYCARDIA [None]
  - WEIGHT DECREASED [None]
